FAERS Safety Report 8379149-7 (Version None)
Quarter: 2012Q2

REPORT INFORMATION
  Report Type: 
  Country: None (occurrence: None)
  Receive Date: 20120523
  Receipt Date: 20120515
  Transmission Date: 20120825
  Serious: Yes (Other)
  Sender: FDA-Public Use
  Company Number: BR-BAYER-2012-047860

PATIENT
  Sex: Female
  Weight: 52.154 kg

DRUGS (2)
  1. MIRENA [Suspect]
     Indication: CONTRACEPTION
     Dosage: 20 ?G/D, CONT
     Route: 015
  2. MIRENA [Suspect]
     Dosage: 20 ?G/D, CONT
     Route: 015
     Dates: start: 20070717

REACTIONS (5)
  - AMENORRHOEA [None]
  - URINARY TRACT INFECTION [None]
  - CRYING [None]
  - PREMENSTRUAL SYNDROME [None]
  - VAGINAL HAEMORRHAGE [None]
